FAERS Safety Report 10511063 (Version 1)
Quarter: 2014Q3

REPORT INFORMATION
  Report Type: Spontaneous
  Country: US (occurrence: None)
  Receive Date: 20140915
  Receipt Date: 20140915
  Transmission Date: 20150326
  Serious: Yes (Other)
  Sender: FDA-Public Use
  Company Number: 2013-US-004806

PATIENT
  Age: 51 Year
  Sex: Female
  Weight: 68 kg

DRUGS (4)
  1. XYREM [Suspect]
     Active Substance: SODIUM OXYBATE
     Indication: NARCOLEPSY
     Route: 048
     Dates: start: 201309, end: 2013
  2. WELLBUTRIN [Concomitant]
     Active Substance: BUPROPION HYDROCHLORIDE
  3. PROGESTERONE (PROGESTERONE) [Concomitant]
  4. TESTOSTERONE PELLETS (TESTOSTERONE) [Concomitant]

REACTIONS (2)
  - Blood pressure fluctuation [None]
  - Hypertension [None]

NARRATIVE: CASE EVENT DATE: 2013
